FAERS Safety Report 8599258 (Version 2)
Quarter: 2012Q4

REPORT INFORMATION
  Report Type: Report from Study
  Country: US (occurrence: US)
  Receive Date: 20120605
  Receipt Date: 20121102
  Transmission Date: 20130627
  Serious: Yes (Hospitalization)
  Sender: FDA-Public Use
  Company Number: US-CELGENEUS-163-21880-12053588

PATIENT
  Age: 85 Year
  Sex: Male
  Weight: 65.38 kg

DRUGS (1)
  1. REVLIMID [Suspect]
     Indication: MULTIPLE MYELOMA
     Dosage: 25 Milligram
     Route: 048
     Dates: start: 20110811, end: 20120218

REACTIONS (7)
  - Constipation [Unknown]
  - Haematochezia [Unknown]
  - Pancytopenia [Unknown]
  - Deep vein thrombosis [Unknown]
  - Diarrhoea [Unknown]
  - Dementia [Unknown]
  - Hypotension [Unknown]
